FAERS Safety Report 6981338-0 (Version None)
Quarter: 2010Q3

REPORT INFORMATION
  Report Type: 
  Country: None (occurrence: None)
  Receive Date: 20100914
  Receipt Date: 20100914
  Transmission Date: 20110219
  Serious: Yes (Other)
  Sender: FDA-Public Use
  Company Number: US-CEPHALON-2010004645

PATIENT
  Sex: Male

DRUGS (3)
  1. NUVIGIL [Suspect]
     Indication: NARCOLEPSY
     Route: 048
  2. DEPAKOTE [Concomitant]
  3. ELAVIL [Concomitant]

REACTIONS (2)
  - RASH [None]
  - THROMBOCYTOPENIA [None]
